FAERS Safety Report 20848764 (Version 2)
Quarter: 2022Q2

REPORT INFORMATION
  Report Type: Spontaneous
  Country: US (occurrence: None)
  Receive Date: 20220519
  Receipt Date: 20220630
  Transmission Date: 20220721
  Serious: No
  Sender: FDA-Public Use
  Company Number: 2022A186415

PATIENT

DRUGS (1)
  1. EVUSHELD [Suspect]
     Active Substance: CILGAVIMAB\TIXAGEVIMAB
     Dosage: 150 MG. OF TIXAGEVIMAB AND 150 MG. OF CILGAVIMAB150.0MG ONCE/SINGLE ADMINISTRATION
     Route: 030

REACTIONS (1)
  - Product use issue [Unknown]
